FAERS Safety Report 6389063-4 (Version None)
Quarter: 2009Q4

REPORT INFORMATION
  Report Type: 
  Country: None (occurrence: None)
  Receive Date: 20091006
  Receipt Date: 20071219
  Transmission Date: 20100525
  Serious: Yes (Other)
  Sender: FDA-Public Use
  Company Number: US-ASTRAZENECA-2006UW24255

PATIENT
  Age: 33 Year
  Sex: Male
  Weight: 167.8 kg

DRUGS (13)
  1. SEROQUEL [Suspect]
     Indication: DEPRESSION
     Route: 048
     Dates: start: 19990301
  2. SEROQUEL [Suspect]
     Indication: SLEEP DISORDER
     Route: 048
     Dates: start: 19990301
  3. SEROQUEL [Suspect]
     Dosage: 50 MG TO 400 MG AT BEDTIME
     Route: 048
     Dates: start: 20010501
  4. SEROQUEL [Suspect]
     Dosage: 50 MG TO 400 MG AT BEDTIME
     Route: 048
     Dates: start: 20010501
  5. NEURONTIN [Concomitant]
     Route: 048
     Dates: start: 20031110
  6. PROCARDIA [Concomitant]
     Indication: HYPERTENSION
     Dosage: 60 XL DAILY
     Dates: start: 20000801
  7. AMBIEN [Concomitant]
     Indication: SLEEP DISORDER
     Dates: start: 20010501
  8. REMERON [Concomitant]
     Dates: start: 20010501
  9. EFFEXOR [Concomitant]
     Dates: start: 20010501
  10. TRAZODONE [Concomitant]
     Indication: SLEEP DISORDER
     Dates: start: 20041001
  11. TOPAMAX [Concomitant]
     Dates: start: 20041001
  12. PAXIL [Concomitant]
     Dates: start: 20010501
  13. ZOCOR [Concomitant]
     Dates: start: 20010501

REACTIONS (4)
  - DIABETES MELLITUS [None]
  - DIABETES MELLITUS INADEQUATE CONTROL [None]
  - HYPERGLYCAEMIA [None]
  - NEUROPATHY PERIPHERAL [None]
